FAERS Safety Report 8277271-7 (Version None)
Quarter: 2012Q2

REPORT INFORMATION
  Report Type: 
  Country: None (occurrence: None)
  Receive Date: 20120412
  Receipt Date: 20110624
  Transmission Date: 20120825
  Serious: Yes (Hospitalization)
  Sender: FDA-Public Use
  Company Number: US-GLAXOSMITHKLINE-A0936049A

PATIENT
  Age: 57 Year
  Sex: Female

DRUGS (1)
  1. AVANDIA [Suspect]
     Indication: DIABETES MELLITUS
     Dosage: 8MG PER DAY
     Route: 048
     Dates: start: 19990101, end: 20070101

REACTIONS (5)
  - CEREBROVASCULAR ACCIDENT [None]
  - BRAIN OPERATION [None]
  - RENAL DISORDER [None]
  - MYOCARDIAL INFARCTION [None]
  - THROMBOSIS [None]
